FAERS Safety Report 4660446-3 (Version None)
Quarter: 2005Q2

REPORT INFORMATION
  Report Type: 
  Country: None (occurrence: None)
  Receive Date: 20050512
  Receipt Date: 20041203
  Transmission Date: 20051028
  Serious: Yes (Life-Threatening)
  Sender: FDA-Public Use
  Company Number: GB-GLAXOSMITHKLINE-B0359511A

PATIENT
  Sex: Female

DRUGS (5)
  1. PAROXETINE HCL [Suspect]
     Indication: DEPRESSION
     Route: 065
     Dates: start: 20000128
  2. ZIMOVANE [Concomitant]
     Dates: start: 20000128
  3. FLUANXOL [Concomitant]
     Dates: start: 20000507
  4. ZOPICLONE [Concomitant]
  5. FLUANXOL [Concomitant]

REACTIONS (4)
  - DRUG INTOLERANCE [None]
  - MOOD ALTERED [None]
  - OVERDOSE [None]
  - SUICIDE ATTEMPT [None]
